FAERS Safety Report 10068093 (Version 3)
Quarter: 2014Q4

REPORT INFORMATION
  Report Type: Spontaneous
  Country: JP (occurrence: JP)
  Receive Date: 20140409
  Receipt Date: 20141128
  Transmission Date: 20150528
  Serious: Yes (Hospitalization)
  Sender: FDA-Public Use
  Company Number: JP-009507513-1404JPN000948

PATIENT
  Age: 71 Year
  Sex: Female

DRUGS (1)
  1. BONALON [Suspect]
     Active Substance: ALENDRONATE SODIUM
     Indication: OSTEOPOROSIS
     Dosage: 35 MG, QW
     Route: 048
     Dates: start: 2003, end: 201306

REACTIONS (5)
  - Femur fracture [Recovered/Resolved]
  - Atypical femur fracture [Recovered/Resolved]
  - Femur fracture [Recovered/Resolved]
  - Atypical femur fracture [Recovered/Resolved]
  - Femur fracture [Recovered/Resolved]

NARRATIVE: CASE EVENT DATE: 2007
